FAERS Safety Report 21918692 (Version 2)
Quarter: 2024Q3

REPORT INFORMATION
  Report Type: Spontaneous
  Country: FI (occurrence: FI)
  Receive Date: 20230127
  Receipt Date: 20240917
  Transmission Date: 20241016
  Serious: Yes (Death)
  Sender: VIFOR
  Company Number: FI-BAXTER-2022BAX031746

PATIENT
  Age: 41 Year
  Sex: Male

DRUGS (18)
  1. MIRCERA [Suspect]
     Active Substance: METHOXY POLYETHYLENE GLYCOL-EPOETIN BETA
     Indication: Product used for unknown indication
     Dosage: 75 MICROGRAM/ 0.3 ML, PREFILLED SYRINGE, ON HOLD, AT 4 P.M., THE DAY OF ADMINISTRATION IS RECORDED O
     Route: 065
     Dates: start: 20221216
  2. AMLODIPINE\LOSARTAN POTASSIUM [Suspect]
     Active Substance: AMLODIPINE\LOSARTAN POTASSIUM
     Indication: Haemodialysis
     Route: 065
  3. SODIUM CHLORIDE [Suspect]
     Active Substance: SODIUM CHLORIDE
     Indication: Haemodialysis
     Dosage: BAG VOLUME: 2000 ML, AT AN UNSPECIFIED DOSE AND FREQUENCY, BAXTER 9 MG/ML INFUSION, LIUOS
     Route: 065
  4. HYDROXOCOBALAMIN ACETATE [Suspect]
     Active Substance: HYDROXOCOBALAMIN ACETATE
     Indication: Product used for unknown indication
     Dosage: 1 MG/ML
     Route: 065
     Dates: start: 20201209, end: 20221217
  5. MONITABS [Concomitant]
     Route: 065
     Dates: start: 20201210
  6. FERINJECT [Concomitant]
     Active Substance: FERRIC CARBOXYMALTOSE
     Dosage: 1 G
     Route: 042
     Dates: start: 20210623, end: 20220720
  7. ASCORBIC ACID\BIOTIN\CALCIUM PANTOTHENATE\CYANOCOBALAMIN\FOLIC ACID\NI [Concomitant]
     Active Substance: ASCORBIC ACID\BIOTIN\CALCIUM PANTOTHENATE\CYANOCOBALAMIN\FOLIC ACID\NIACINAMIDE\PYRIDOXINE HYDROCHLO
     Dosage: 1X1
     Route: 065
     Dates: start: 20201008
  8. ALFACALCIDOL [Concomitant]
     Active Substance: ALFACALCIDOL
     Route: 065
     Dates: start: 20220113
  9. SIMVASTATIN [Concomitant]
     Active Substance: SIMVASTATIN
     Dosage: 20 MG, 1X1, TAKE IN MORNINGS, DOSAGE FORM FILM COATED TABLET
     Route: 065
     Dates: start: 20150805
  10. ZOPICLONE [Concomitant]
     Active Substance: ZOPICLONE
     Dosage: 7.5 MG, 1X1
     Route: 065
     Dates: start: 20221013
  11. MELATONIN [Concomitant]
     Active Substance: MELATONIN
     Dosage: 3 MG, 1X1
     Route: 065
     Dates: start: 20220920
  12. LOMUDAL [Concomitant]
     Dosage: 40 MG/ML, 1X2-3, SINGLE DOSE PACKAGE
     Route: 065
     Dates: start: 20220930
  13. ACETAMINOPHEN [Concomitant]
     Active Substance: ACETAMINOPHEN
     Dosage: 1000 MG, 1X1-3
     Route: 065
     Dates: start: 20220422
  14. CALCIUM\CHOLECALCIFEROL [Concomitant]
     Active Substance: CALCIUM\CHOLECALCIFEROL
     Dosage: 500MG/10 MCG,
     Route: 065
     Dates: start: 20201116
  15. INNOHEP [Concomitant]
     Active Substance: TINZAPARIN SODIUM
     Dosage: INNOHEP 3500 ANTI-XA IU, DIALYSIS DRUG, AT THE BEGINNING OF TREATMENT INTO THE TUBING, E.O. SUBCUTAN
     Route: 065
     Dates: start: 20190516
  16. RENVELA [Concomitant]
     Active Substance: SEVELAMER CARBONATE
     Dosage: 800 MG, 2X3 WITH MEALS
     Route: 065
     Dates: start: 20201008
  17. FOSRENOL [Concomitant]
     Active Substance: LANTHANUM CARBONATE
     Dosage: 500 MG, 1X2, WITH MEALS
     Route: 065
     Dates: start: 20170720
  18. CINACALCET [Concomitant]
     Active Substance: CINACALCET
     Dosage: 30 MG, 1X2
     Route: 065
     Dates: start: 20220923

REACTIONS (1)
  - Ventricular fibrillation [Fatal]

NARRATIVE: CASE EVENT DATE: 20221223
